FAERS Safety Report 6778000-6 (Version None)
Quarter: 2010Q2

REPORT INFORMATION
  Report Type: 
  Country: None (occurrence: None)
  Receive Date: 20100618
  Receipt Date: 20100608
  Transmission Date: 20101027
  Serious: No
  Sender: FDA-Public Use
  Company Number: US-BIOGENIDEC-2010BI019492

PATIENT
  Age: 42 Year
  Sex: Male

DRUGS (1)
  1. TYSABRI [Suspect]
     Indication: MULTIPLE SCLEROSIS
     Route: 042
     Dates: start: 20100602

REACTIONS (5)
  - DIZZINESS [None]
  - HYPERSOMNIA [None]
  - HYPOPHAGIA [None]
  - LOSS OF CONTROL OF LEGS [None]
  - SUICIDAL IDEATION [None]
